FAERS Safety Report 17712276 (Version 1)
Quarter: 2020Q2

REPORT INFORMATION
  Report Type: Report from Study
  Country: IT (occurrence: IT)
  Receive Date: 20200427
  Receipt Date: 20200427
  Transmission Date: 20200714
  Serious: Yes (Hospitalization)
  Sender: FDA-Public Use
  Company Number: IT-AMGEN-ITACT2020066764

PATIENT
  Age: 38 Year
  Sex: Male

DRUGS (17)
  1. G-CSF [Suspect]
     Active Substance: GRANULOCYTE COLONY-STIMULATING FACTOR NOS
     Indication: ACUTE LYMPHOCYTIC LEUKAEMIA
     Dosage: 30 MU
     Route: 058
     Dates: start: 20190712
  2. DIFLUCAN [Concomitant]
     Active Substance: FLUCONAZOLE
     Dosage: UNK
     Route: 058
     Dates: start: 20190706, end: 20190712
  3. LANTUS [Concomitant]
     Active Substance: INSULIN GLARGINE
     Dosage: 100IU/ML, QD
     Route: 058
  4. VANCOMICINA [VANCOMYCIN] [Concomitant]
     Active Substance: VANCOMYCIN
     Dosage: UNK
     Route: 042
     Dates: start: 20190715, end: 20190719
  5. RIVOTRIL [Concomitant]
     Active Substance: CLONAZEPAM
     Dosage: 2.5 MILLIGRAM PER MILLILITRE, QD
     Route: 048
  6. PARACETAMOL [Concomitant]
     Active Substance: ACETAMINOPHEN
     Indication: HEADACHE
  7. BLINATUMOMAB [Suspect]
     Active Substance: BLINATUMOMAB
     Indication: ACUTE LYMPHOCYTIC LEUKAEMIA
     Route: 065
  8. PERFALGAN [Concomitant]
     Active Substance: ACETAMINOPHEN
     Dosage: 10 MILLIGRAM
     Route: 042
     Dates: start: 20190402, end: 20190719
  9. ZOVIRAX [Concomitant]
     Active Substance: ACYCLOVIR
     Dosage: 400 MILLIGRAM
     Route: 048
     Dates: start: 20190628, end: 20190720
  10. METHOTREXATE. [Suspect]
     Active Substance: METHOTREXATE
     Indication: ACUTE LYMPHOCYTIC LEUKAEMIA
     Dosage: 3950 MILLIGRAM
     Route: 042
     Dates: start: 20190705
  11. SEROQUEL [Concomitant]
     Active Substance: QUETIAPINE FUMARATE
     Dosage: 50 MILLIGRAM, QD
     Route: 048
  12. DIFLUCAN [Concomitant]
     Active Substance: FLUCONAZOLE
     Dosage: UNK
     Route: 048
     Dates: start: 20190706, end: 20190712
  13. HUMALOG [Concomitant]
     Active Substance: INSULIN LISPRO
     Dosage: 100U/ML, QD
     Route: 058
  14. KEPPRA [Concomitant]
     Active Substance: LEVETIRACETAM
     Dosage: 500 MILLIGRAM, QD
     Route: 048
  15. PEG/L-ASPARAGINASE [Suspect]
     Active Substance: PEGASPARGASE
     Indication: ACUTE LYMPHOCYTIC LEUKAEMIA
     Route: 065
  16. METHYLPREDNISOLONE. [Concomitant]
     Active Substance: METHYLPREDNISOLONE
     Dosage: UNK
     Route: 042
     Dates: start: 20190713, end: 20190720
  17. CYTARABINE. [Suspect]
     Active Substance: CYTARABINE
     Indication: ACUTE LYMPHOCYTIC LEUKAEMIA
     Dosage: 3160 MILLIGRAM, BID
     Route: 042
     Dates: start: 20190707

REACTIONS (1)
  - Intracranial hypotension [Recovered/Resolved]

NARRATIVE: CASE EVENT DATE: 20190702
